FAERS Safety Report 9764664 (Version 2)
Quarter: 2013Q4

REPORT INFORMATION
  Report Type: Report from Study
  Country: US (occurrence: US)
  Receive Date: 20131217
  Receipt Date: 20131217
  Transmission Date: 20140711
  Serious: Yes (Other)
  Sender: FDA-Public Use
  Company Number: US-SANOFI-AVENTIS-2013SA060417

PATIENT
  Age: 45 Year
  Sex: Female

DRUGS (1)
  1. AUBAGIO [Suspect]
     Indication: MULTIPLE SCLEROSIS
     Dosage: PRODUCT STARTED 3.5 MONTHS AGO
     Route: 048
     Dates: start: 201302

REACTIONS (4)
  - Cardiomegaly [Unknown]
  - Pulmonary mass [Unknown]
  - Vitamin D decreased [Not Recovered/Not Resolved]
  - Alopecia [Recovering/Resolving]
